FAERS Safety Report 12118722 (Version 3)
Quarter: 2016Q1

REPORT INFORMATION
  Report Type: Spontaneous
  Country: US (occurrence: US)
  Receive Date: 20160226
  Receipt Date: 20160302
  Transmission Date: 20160526
  Serious: No
  Sender: FDA-Public Use
  Company Number: US-TEVA-633231ACC

PATIENT
  Sex: Female

DRUGS (1)
  1. PARAGARD T 380A [Suspect]
     Active Substance: COPPER
     Indication: CONTRACEPTION
     Route: 065
     Dates: start: 20091009, end: 20160118

REACTIONS (6)
  - Menstruation delayed [Unknown]
  - Muscle spasms [Unknown]
  - Device expulsion [Recovered/Resolved]
  - Embedded device [Recovered/Resolved]
  - Discomfort [Unknown]
  - Device breakage [Recovered/Resolved]

NARRATIVE: CASE EVENT DATE: 20160118
